FAERS Safety Report 13089341 (Version 1)
Quarter: 2017Q1

REPORT INFORMATION
  Report Type: Spontaneous
  Country: US (occurrence: US)
  Receive Date: 20170105
  Receipt Date: 20170105
  Transmission Date: 20170428
  Serious: No
  Sender: FDA-Public Use
  Company Number: PHEH2014US000949

PATIENT
  Age: 68 Year
  Sex: Male

DRUGS (2)
  1. EXELON PATCH [Suspect]
     Active Substance: RIVASTIGMINE
     Indication: PRODUCT USED FOR UNKNOWN INDICATION
     Dosage: 4.6 MG, UNK
     Route: 062
     Dates: start: 201306
  2. EXELON PATCH [Suspect]
     Active Substance: RIVASTIGMINE
     Dosage: 9.5 MG, UNK
     Route: 062

REACTIONS (8)
  - Application site erythema [Unknown]
  - Wrong technique in product usage process [Unknown]
  - Application site erosion [Unknown]
  - Application site mass [Unknown]
  - Application site rash [Unknown]
  - Urticaria [Unknown]
  - Application site pruritus [Unknown]
  - Application site irritation [Unknown]

NARRATIVE: CASE EVENT DATE: 201306
